FAERS Safety Report 6121196-X (Version None)
Quarter: 2009Q1

REPORT INFORMATION
  Report Type: 
  Country: None (occurrence: None)
  Receive Date: 20090311
  Receipt Date: 20090311
  Transmission Date: 20090719
  Serious: Yes (Congenital Anomaly)
  Sender: FDA-Public Use
  Company Number: None

PATIENT
  Age: 1 Day
  Sex: Female

DRUGS (4)
  1. RIBAVIRIN [Suspect]
     Indication: HEPATITIS C
     Dates: start: 20070501, end: 20071001
  2. IRON SUPPLEMENT [Concomitant]
  3. VITAMIN TAB [Concomitant]
  4. FOLIC ACID [Concomitant]

REACTIONS (6)
  - APGAR SCORE LOW [None]
  - CONGENITAL PULMONARY HYPERTENSION [None]
  - MATERNAL DRUGS AFFECTING FOETUS [None]
  - RESPIRATORY DISORDER NEONATAL [None]
  - TRISOMY 21 [None]
  - VENTRICULAR SEPTAL DEFECT [None]
